FAERS Safety Report 6140772-1 (Version None)
Quarter: 2009Q2

REPORT INFORMATION
  Report Type: 
  Country: None (occurrence: None)
  Receive Date: 20090402
  Receipt Date: 20080306
  Transmission Date: 20091009
  Serious: No
  Sender: FDA-Public Use
  Company Number: US-KINGPHARMUSA00001-K200800295

PATIENT
  Sex: Female

DRUGS (6)
  1. SKELAXIN [Suspect]
     Indication: ARTHRALGIA
     Dosage: 800 MG, TID
     Route: 048
     Dates: start: 20080305
  2. SYNTHROID [Concomitant]
     Indication: THYROID DISORDER
  3. BENICAR [Concomitant]
     Indication: HYPERTENSION
  4. ZOCOR [Concomitant]
     Indication: HYPERCHOLESTEROLAEMIA
  5. ACULAR /01001802/ [Concomitant]
     Indication: GLAUCOMA
  6. SYSTANE /02034401/ [Concomitant]
     Indication: GLAUCOMA

REACTIONS (1)
  - INSOMNIA [None]
